FAERS Safety Report 14641520 (Version 1)
Quarter: 2018Q1

REPORT INFORMATION
  Report Type: Spontaneous
  Country: US (occurrence: US)
  Receive Date: 20180315
  Receipt Date: 20180315
  Transmission Date: 20180509
  Serious: No
  Sender: FDA-Public Use
  Company Number: US-ASTRAZENECA-2018SE21346

PATIENT
  Sex: Female

DRUGS (2)
  1. FASLODEX [Suspect]
     Active Substance: FULVESTRANT
     Indication: BREAST CANCER FEMALE
     Route: 030
  2. IBRANCE [Suspect]
     Active Substance: PALBOCICLIB
     Indication: BREAST CANCER FEMALE
     Route: 048
     Dates: start: 20171102

REACTIONS (6)
  - Gait disturbance [Unknown]
  - Drug dose omission [Unknown]
  - Arthralgia [Unknown]
  - Decreased appetite [Unknown]
  - Fatigue [Unknown]
  - Back pain [Unknown]
